FAERS Safety Report 20553126 (Version 1)
Quarter: 2022Q1

REPORT INFORMATION
  Report Type: Spontaneous
  Country: US (occurrence: None)
  Receive Date: 20220304
  Receipt Date: 20220304
  Transmission Date: 20220423
  Serious: No
  Sender: FDA-Public Use
  Company Number: None

PATIENT
  Age: 73 Year
  Sex: Male
  Weight: 125 kg

DRUGS (1)
  1. MOLNUPIRAVIR [Suspect]
     Active Substance: MOLNUPIRAVIR
     Indication: COVID-19
     Dosage: 800 MG BID PO
     Route: 048
     Dates: start: 20220220, end: 20220224

REACTIONS (4)
  - Rash [None]
  - Pruritus [None]
  - Rash erythematous [None]
  - Pallor [None]

NARRATIVE: CASE EVENT DATE: 20220224
